FAERS Safety Report 15331722 (Version 1)
Quarter: 2018Q3

REPORT INFORMATION
  Report Type: Spontaneous
  Country: US (occurrence: US)
  Receive Date: 20180824
  Receipt Date: 20180824
  Transmission Date: 20181010
  Serious: Yes (Other)
  Sender: FDA-Public Use
  Company Number: None

PATIENT
  Age: 65 Year
  Sex: Male
  Weight: 138.6 kg

DRUGS (16)
  1. SPIRONOLACTONE. [Concomitant]
     Active Substance: SPIRONOLACTONE
  2. LORAZEPAM. [Concomitant]
     Active Substance: LORAZEPAM
  3. MULTIPLE VITAMIN [Concomitant]
     Active Substance: VITAMINS
  4. WARFARIN SOD 7.5MG TABLET (YELLOW) GENERIC FOR COUMADIN [Suspect]
     Active Substance: WARFARIN SODIUM
     Indication: DEEP VEIN THROMBOSIS
     Dosage: ?          QUANTITY:30 TABLET(S);?
     Route: 048
  5. LASIX [Concomitant]
     Active Substance: FUROSEMIDE
  6. CALCIUM [Concomitant]
     Active Substance: CALCIUM
  7. MAGNESIUM [Concomitant]
     Active Substance: MAGNESIUM
  8. MILK THISTLE [Concomitant]
     Active Substance: DIETARY SUPPLEMENT\HERBALS\MILK THISTLE
  9. WARFARIN SOD 7.5MG TABLET (YELLOW) GENERIC FOR COUMADIN [Suspect]
     Active Substance: WARFARIN SODIUM
     Indication: PULMONARY EMBOLISM
     Dosage: ?          QUANTITY:30 TABLET(S);?
     Route: 048
  10. ELIQUIS [Concomitant]
     Active Substance: APIXABAN
  11. TRAZODONE [Concomitant]
     Active Substance: TRAZODONE HYDROCHLORIDE
  12. FLEXERIL [Concomitant]
     Active Substance: CYCLOBENZAPRINE HYDROCHLORIDE
  13. KRILL OIL [Concomitant]
     Active Substance: DIETARY SUPPLEMENT
  14. GLUCOSAMINE W/CHONDROITIN [Concomitant]
     Active Substance: CHONDROITIN SULFATE A\GLUCOSAMINE
  15. ZINC. [Concomitant]
     Active Substance: ZINC
  16. VITAMIN B?100 [Concomitant]

REACTIONS (1)
  - Blue toe syndrome [None]

NARRATIVE: CASE EVENT DATE: 20180823
